FAERS Safety Report 4332187-3 (Version None)
Quarter: 2004Q1

REPORT INFORMATION
  Report Type: 
  Country: None (occurrence: None)
  Receive Date: 20040329
  Receipt Date: 20040217
  Transmission Date: 20041129
  Serious: No
  Sender: FDA-Public Use
  Company Number: US_0402100997

PATIENT
  Age: 7 Year
  Sex: Male

DRUGS (1)
  1. STRATTERA [Suspect]
     Dosage: 36 MG/1 DAY

REACTIONS (3)
  - INSOMNIA [None]
  - MEDICATION ERROR [None]
  - NAUSEA [None]
